FAERS Safety Report 6838124-1 (Version None)
Quarter: 2010Q3

REPORT INFORMATION
  Report Type: 
  Country: None (occurrence: None)
  Receive Date: 20100713
  Receipt Date: 20070601
  Transmission Date: 20110219
  Serious: No
  Sender: FDA-Public Use
  Company Number: US-PFIZER INC-2007047043

PATIENT
  Age: 65 Year
  Sex: Female
  Weight: 54.5 kg

DRUGS (3)
  1. CHANTIX [Suspect]
     Indication: SMOKING CESSATION THERAPY
     Dates: start: 20070501, end: 20070531
  2. BENADRYL [Suspect]
     Indication: RASH
     Route: 061
     Dates: start: 20070501
  3. DRUG, UNSPECIFIED [Concomitant]

REACTIONS (2)
  - RASH [None]
  - STRESS [None]
